FAERS Safety Report 23105097 (Version 1)
Quarter: 2023Q4

REPORT INFORMATION
  Report Type: Spontaneous
  Country: IE (occurrence: IE)
  Receive Date: 20231025
  Receipt Date: 20231025
  Transmission Date: 20240109
  Serious: Yes (Other)
  Sender: FDA-Public Use
  Company Number: None

PATIENT
  Age: 37 Year
  Sex: Female

DRUGS (3)
  1. LYRICA [Suspect]
     Active Substance: PREGABALIN
     Indication: Product used for unknown indication
     Dosage: 300 (UNITS NOT PROVIDED) TID APPROXIMATELY
     Route: 048
     Dates: start: 2022
  2. METHADONE [Concomitant]
     Active Substance: METHADONE HYDROCHLORIDE
     Indication: Drug dependence
     Dosage: 60 MILLIGRAM
     Route: 065
     Dates: start: 20201025
  3. DIAZEPAM [Concomitant]
     Active Substance: DIAZEPAM
     Indication: Drug dependence
     Dosage: 5 MILLIGRAM, Q6H
     Route: 065
     Dates: start: 20220801

REACTIONS (4)
  - Disease risk factor [Unknown]
  - Somnolence [Unknown]
  - Drug abuse [Unknown]
  - Prescription drug used without a prescription [Unknown]

NARRATIVE: CASE EVENT DATE: 20220101
